FAERS Safety Report 17367846 (Version 1)
Quarter: 2020Q1

REPORT INFORMATION
  Report Type: Spontaneous
  Country: US (occurrence: US)
  Receive Date: 20200203
  Receipt Date: 20200203
  Transmission Date: 20200409
  Serious: Yes (Life-Threatening)
  Sender: FDA-Public Use
  Company Number: None

PATIENT
  Age: 41 Year
  Sex: Female

DRUGS (2)
  1. DIVALPROEX SODIUM DR [Suspect]
     Active Substance: DIVALPROEX SODIUM
  2. DIVALPROEX DR CAPSULE SPRINKLES [Suspect]
     Active Substance: DIVALPROEX SODIUM

REACTIONS (22)
  - Vision blurred [None]
  - Eye swelling [None]
  - Premenstrual dysphoric disorder [None]
  - Somnambulism [None]
  - Hypertension [None]
  - Incorrect dose administered [None]
  - Confusional state [None]
  - Chills [None]
  - Incorrect product dosage form administered [None]
  - Drooling [None]
  - Abdominal discomfort [None]
  - Bradycardia [None]
  - Amnesia [None]
  - Post-traumatic stress disorder [None]
  - Altered state of consciousness [None]
  - Swelling face [None]
  - Hypoaesthesia [None]
  - Mania [None]
  - Tachycardia [None]
  - Coordination abnormal [None]
  - Sleep disorder [None]
  - Product dispensing error [None]

NARRATIVE: CASE EVENT DATE: 20200126
